FAERS Safety Report 5906503-2 (Version None)
Quarter: 2008Q4

REPORT INFORMATION
  Report Type: 
  Country: None (occurrence: None)
  Receive Date: 20081002
  Receipt Date: 20080919
  Transmission Date: 20090506
  Serious: No
  Sender: FDA-Public Use
  Company Number: US-B.I. PHARMACEUTICALS,INC./RIDGEFIELD-2008-BP-12422BP

PATIENT
  Age: 65 Year
  Sex: Male
  Weight: 73 kg

DRUGS (2)
  1. FLOMAX [Suspect]
     Indication: BENIGN PROSTATIC HYPERPLASIA
     Dosage: .4MG
     Route: 048
     Dates: start: 20070928, end: 20080803
  2. METOPROL [Concomitant]
     Indication: HYPERTENSION
     Route: 048

REACTIONS (5)
  - CONSTIPATION [None]
  - HYPOTENSION [None]
  - RHINORRHOEA [None]
  - RHINOVIRUS INFECTION [None]
  - SYNCOPE [None]
